FAERS Safety Report 9788121 (Version 1)
Quarter: 2013Q4

REPORT INFORMATION
  Report Type: Spontaneous
  Country: US (occurrence: None)
  Receive Date: 20131227
  Receipt Date: 20131227
  Transmission Date: 20140711
  Serious: Yes (Hospitalization)
  Sender: FDA-Public Use
  Company Number: None

PATIENT
  Age: 81 Year
  Sex: Male
  Weight: 68.3 kg

DRUGS (15)
  1. TICAGRELOR [Suspect]
     Indication: CORONARY ARTERY DISEASE
     Dosage: CHRONIC
     Route: 048
  2. TICAGRELOR [Suspect]
     Indication: STENT PLACEMENT
     Dosage: CHRONIC
     Route: 048
  3. ASPIRIN [Suspect]
     Indication: CORONARY ARTERY DISEASE
     Dosage: CHRONIC
     Route: 048
  4. ASPIRIN [Suspect]
     Indication: STENT PLACEMENT
     Dosage: CHRONIC
     Route: 048
  5. OXYBUTYNIN [Concomitant]
  6. LEVOTHYROXINE [Concomitant]
  7. FINASTERIDE [Concomitant]
  8. LISINOPRIL [Concomitant]
  9. SEPTRA DS [Concomitant]
  10. PRAVACHOL [Concomitant]
  11. MIRTAZAPINE [Concomitant]
  12. AMIODARONE [Concomitant]
  13. FLOMAX [Concomitant]
  14. METOPROLOL [Concomitant]
  15. MV [Concomitant]

REACTIONS (16)
  - Renal failure acute [None]
  - Benign prostatic hyperplasia [None]
  - Small intestinal obstruction [None]
  - Haematuria [None]
  - Pulseless electrical activity [None]
  - Cardiac arrest [None]
  - Haemorrhage [None]
  - Hypovolaemia [None]
  - Haemoglobin decreased [None]
  - Gastrointestinal haemorrhage [None]
  - Large intestinal haemorrhage [None]
  - Tumour haemorrhage [None]
  - Acute respiratory failure [None]
  - Dysphagia [None]
  - Haematocrit decreased [None]
  - Shock haemorrhagic [None]
